FAERS Safety Report 9903709 (Version 1)
Quarter: 2014Q1

REPORT INFORMATION
  Report Type: Spontaneous
  Country: US (occurrence: US)
  Receive Date: 20140217
  Receipt Date: 20140217
  Transmission Date: 20141002
  Serious: Yes (Death)
  Sender: FDA-Public Use
  Company Number: US-ROCHE-1351307

PATIENT
  Age: 61 Year
  Sex: Male

DRUGS (2)
  1. XELODA [Suspect]
     Indication: BONE CANCER
     Route: 048
     Dates: start: 20131122, end: 20140209
  2. XELODA [Suspect]
     Indication: BONE CANCER

REACTIONS (1)
  - Death [Fatal]
